FAERS Safety Report 6125247-8 (Version None)
Quarter: 2009Q1

REPORT INFORMATION
  Report Type: 
  Country: None (occurrence: None)
  Receive Date: 20090319
  Receipt Date: 20090319
  Transmission Date: 20090719
  Serious: Yes (Other)
  Sender: FDA-Public Use
  Company Number: None

PATIENT
  Sex: Female
  Weight: 63.5036 kg

DRUGS (1)
  1. DEXAMETHASONE TAB [Suspect]
     Indication: PHARYNGITIS
     Dates: start: 20090317, end: 20090317

REACTIONS (13)
  - ANXIETY [None]
  - BRUXISM [None]
  - CRYING [None]
  - HEART RATE INCREASED [None]
  - HYPERVIGILANCE [None]
  - INCORRECT DOSE ADMINISTERED [None]
  - INSOMNIA [None]
  - IRRITABILITY [None]
  - MEDICATION ERROR [None]
  - MOOD SWINGS [None]
  - MUSCLE TWITCHING [None]
  - RESPIRATORY DISORDER [None]
  - TREMOR [None]
